FAERS Safety Report 6997945-5 (Version None)
Quarter: 2010Q3

REPORT INFORMATION
  Report Type: 
  Country: None (occurrence: None)
  Receive Date: 20100901
  Receipt Date: 20091217
  Transmission Date: 20110219
  Serious: Yes (Hospitalization)
  Sender: FDA-Public Use
  Company Number: 218339USA

PATIENT
  Age: 29 Year
  Sex: Male

DRUGS (1)
  1. PIMOZIDE TABLETS (PIMOZIDE) [Suspect]
     Indication: TOURETTE'S DISORDER
     Dosage: 1 MG (1 MG, 1 IN 1 D),ORAL
     Route: 048
     Dates: start: 19930101, end: 20090101

REACTIONS (6)
  - ABNORMAL LOSS OF WEIGHT [None]
  - ANGER [None]
  - IRRITABILITY [None]
  - OBSESSIVE-COMPULSIVE DISORDER [None]
  - PARANOIA [None]
  - SOCIAL AVOIDANT BEHAVIOUR [None]
